FAERS Safety Report 24621681 (Version 2)
Quarter: 2025Q1

REPORT INFORMATION
  Report Type: Spontaneous
  Country: JP (occurrence: JP)
  Receive Date: 20241114
  Receipt Date: 20250116
  Transmission Date: 20250408
  Serious: Yes (Other)
  Sender: PFIZER
  Company Number: JP-PFIZER INC-202400301229

PATIENT
  Age: 50 Year
  Sex: Male

DRUGS (5)
  1. LITFULO [Suspect]
     Active Substance: RITLECITINIB TOSYLATE
     Indication: Alopecia areata
     Dosage: 50 MG, 1X/DAY
     Route: 048
     Dates: start: 20240918
  2. HERBALS [Concomitant]
     Active Substance: HERBALS
     Indication: Alopecia
     Dosage: 25 G, 3X/DAY BEFORE EVERY MEALS
  3. CEPHARANTHINE [Concomitant]
     Active Substance: CEPHARANTHINE
     Indication: Alopecia
  4. AMMONIUM GLYCYRRHIZATE\GLYCINE\RACEMETHIONINE [Concomitant]
     Active Substance: AMMONIUM GLYCYRRHIZATE\GLYCINE\RACEMETHIONINE
     Indication: Alopecia
  5. HALOPERIDOL [Concomitant]
     Active Substance: HALOPERIDOL
     Indication: Hallucination, auditory
     Dosage: UNK, MONTHLY

REACTIONS (7)
  - Suicidal ideation [Unknown]
  - Emotional disorder [Unknown]
  - Discouragement [Unknown]
  - Insomnia [Recovering/Resolving]
  - Decreased appetite [Unknown]
  - Weight decreased [Recovered/Resolved]
  - Headache [Recovering/Resolving]

NARRATIVE: CASE EVENT DATE: 20241007
